FAERS Safety Report 5283613-7 (Version None)
Quarter: 2007Q2

REPORT INFORMATION
  Report Type: 
  Country: None (occurrence: None)
  Receive Date: 20070402
  Receipt Date: 20070330
  Transmission Date: 20071010
  Serious: Yes (Death, Other)
  Sender: FDA-Public Use
  Company Number: 2006UW24221

PATIENT
  Age: 15253 Day
  Sex: Female

DRUGS (6)
  1. SEROQUEL [Suspect]
     Indication: SCHIZOPHRENIA
     Route: 048
  2. SEROQUEL [Suspect]
     Indication: DEPRESSION
     Route: 048
  3. ABILIFY [Concomitant]
     Dates: start: 20040924
  4. HALDOL [Concomitant]
     Dates: start: 20040605
  5. RISPERDAL [Concomitant]
     Dates: start: 20051103
  6. TRILAFON [Concomitant]
     Dates: start: 20020319

REACTIONS (3)
  - DEATH [None]
  - DIABETES MELLITUS [None]
  - PANCREATITIS [None]
